FAERS Safety Report 7780678-5 (Version None)
Quarter: 2011Q3

REPORT INFORMATION
  Report Type: 
  Country: None (occurrence: None)
  Receive Date: 20110927
  Receipt Date: 20110318
  Transmission Date: 20111222
  Serious: No
  Sender: FDA-Public Use
  Company Number: US-BRISTOL-MYERS SQUIBB COMPANY-15606973

PATIENT
  Age: 68 Year
  Sex: Female
  Weight: 88 kg

DRUGS (4)
  1. NAPROXEN (ALEVE) [Suspect]
  2. CRESTOR [Concomitant]
  3. BENICAR [Concomitant]
  4. AVAPRO [Suspect]
     Indication: HYPERTENSION
     Dosage: ALSO TAKEN AS 300 MG.12 YEARS AGO,LOT # DB58441A

REACTIONS (2)
  - BLOOD PRESSURE INADEQUATELY CONTROLLED [None]
  - PRODUCT COUNTERFEIT [None]
